FAERS Safety Report 24981096 (Version 1)
Quarter: 2025Q1

REPORT INFORMATION
  Report Type: Spontaneous
  Country: US (occurrence: US)
  Receive Date: 20250218
  Receipt Date: 20250218
  Transmission Date: 20250408
  Serious: No
  Sender: MERZ
  Company Number: US-MERZ PHARMACEUTICALS, LLC-ACO_177560_2024

PATIENT
  Age: 67 Year
  Sex: Female

DRUGS (7)
  1. INBRIJA [Suspect]
     Active Substance: LEVODOPA
     Indication: Parkinson^s disease
     Dates: start: 20240628
  2. INBRIJA [Suspect]
     Active Substance: LEVODOPA
     Indication: On and off phenomenon
     Dates: start: 20240628
  3. INBRIJA [Suspect]
     Active Substance: LEVODOPA
     Dates: start: 20240628
  4. CARBIDOPA\LEVODOPA [Concomitant]
     Active Substance: CARBIDOPA\LEVODOPA
     Indication: Product used for unknown indication
     Dosage: 25/100, 1 DOSAGE FORM, BID
     Route: 065
  5. CARBIDOPA\LEVODOPA [Concomitant]
     Active Substance: CARBIDOPA\LEVODOPA
     Dosage: 25/100, 1.5 DOSAGE FORM , BID
     Route: 065
  6. CARBIDOPA\LEVODOPA [Concomitant]
     Active Substance: CARBIDOPA\LEVODOPA
     Dosage: 25/100, 1 DOSAGE FORM, QD
     Route: 065
  7. CARBIDOPA\LEVODOPA [Concomitant]
     Active Substance: CARBIDOPA\LEVODOPA
     Dosage: 25/100, 1.5 DOSAGE FORM, QID
     Route: 065

REACTIONS (8)
  - Therapeutic product effect variable [Unknown]
  - Wrong technique in device usage process [Not Recovered/Not Resolved]
  - Device colour issue [Not Recovered/Not Resolved]
  - Product cleaning inadequate [Not Recovered/Not Resolved]
  - Device occlusion [Not Recovered/Not Resolved]
  - Device issue [Not Recovered/Not Resolved]
  - Somnolence [Not Recovered/Not Resolved]
  - Cough [Not Recovered/Not Resolved]

NARRATIVE: CASE EVENT DATE: 20240716
